FAERS Safety Report 9136766 (Version 1)
Quarter: 2013Q1

REPORT INFORMATION
  Report Type: Spontaneous
  Country: US (occurrence: US)
  Receive Date: 20130304
  Receipt Date: 20130304
  Transmission Date: 20140127
  Serious: No
  Sender: FDA-Public Use
  Company Number: US-ABBOTT-12P-163-1029446-00

PATIENT
  Age: 86 Year
  Sex: Male

DRUGS (6)
  1. ANDROGEL [Suspect]
     Indication: BLOOD TESTOSTERONE DECREASED
     Dosage: PACKETS
     Dates: start: 2008, end: 2009
  2. ANDROGEL [Suspect]
     Dates: start: 2009, end: 2012
  3. ANDROGEL [Suspect]
     Dates: start: 2012
  4. SYNTHROID [Concomitant]
     Indication: HYPOTHYROIDISM
  5. BABY ASPIRIN [Concomitant]
     Indication: CARDIAC DISORDER
  6. EYE DROPS UNKNOWN [Concomitant]
     Indication: GLAUCOMA

REACTIONS (1)
  - Atrial fibrillation [Not Recovered/Not Resolved]
